FAERS Safety Report 9122655 (Version 2)
Quarter: 2014Q2

REPORT INFORMATION
  Report Type: Report from Study
  Country: MX (occurrence: MX)
  Receive Date: 20130227
  Receipt Date: 20140617
  Transmission Date: 20141212
  Serious: Yes (Death, Hospitalization, Other)
  Sender: FDA-Public Use
  Company Number: PHHY2013MX018857

PATIENT
  Age: 61 Year
  Sex: Female

DRUGS (2)
  1. RASILEZ [Suspect]
     Indication: HYPERTENSION
     Dosage: 1 UKN, DAILY
     Dates: start: 20080814
  2. GALVUS [Suspect]
     Indication: DIABETES MELLITUS
     Dosage: 2 DF, DAILY
     Route: 048
     Dates: start: 20110714

REACTIONS (3)
  - Aspiration bronchial [Fatal]
  - Pneumonia [Recovered/Resolved]
  - Respiratory disorder [Recovered/Resolved]
